FAERS Safety Report 10457328 (Version 1)
Quarter: 2014Q3

REPORT INFORMATION
  Report Type: Spontaneous
  Country: US (occurrence: US)
  Receive Date: 20140916
  Receipt Date: 20140916
  Transmission Date: 20150326
  Serious: No
  Sender: FDA-Public Use
  Company Number: US-ENDO PHARMACEUTICALS INC.-BUTA20140011

PATIENT
  Sex: Male

DRUGS (1)
  1. BUTALBITAL, ACETAMINOPHEN, CAFFEINE [Suspect]
     Active Substance: ACETAMINOPHEN\BUTALBITAL\CAFFEINE
     Indication: HEADACHE
     Dosage: 150MG/1500MG/120MG
     Route: 048
     Dates: end: 2014

REACTIONS (3)
  - Inappropriate schedule of drug administration [Recovered/Resolved]
  - Drug screen positive [Unknown]
  - Expired product administered [Recovered/Resolved]

NARRATIVE: CASE EVENT DATE: 201406
